FAERS Safety Report 11343683 (Version 1)
Quarter: 2015Q3

REPORT INFORMATION
  Report Type: Spontaneous
  Country: US (occurrence: None)
  Receive Date: 20150804
  Receipt Date: 20150804
  Transmission Date: 20151125
  Serious: Yes (Hospitalization)
  Sender: FDA-Public Use
  Company Number: None

PATIENT
  Age: 46 Year
  Sex: Female
  Weight: 92.55 kg

DRUGS (1)
  1. FEMARA [Suspect]
     Active Substance: LETROZOLE
     Dates: end: 20150719

REACTIONS (5)
  - Vomiting [None]
  - Constipation [None]
  - Nausea [None]
  - Abdominal pain [None]
  - Metastases to gallbladder [None]

NARRATIVE: CASE EVENT DATE: 20150721
